FAERS Safety Report 5918637-7 (Version None)
Quarter: 2008Q3

REPORT INFORMATION
  Report Type: 
  Country: None (occurrence: None)
  Receive Date: 20080909
  Receipt Date: 20070814
  Transmission Date: 20090109
  Serious: Yes (Death)
  Sender: FDA-Public Use
  Company Number: 163-20785-07071626

PATIENT
  Age: 31 Year
  Sex: Male

DRUGS (1)
  1. THALOMID [Suspect]
     Indication: MALIGNANT MELANOMA
     Dosage: 250-650MG, DAILY, ORAL
     Route: 048
     Dates: start: 20020401, end: 20020601

REACTIONS (1)
  - MALIGNANT NEOPLASM PROGRESSION [None]
